FAERS Safety Report 19661808 (Version 1)
Quarter: 2021Q3

REPORT INFORMATION
  Report Type: Spontaneous
  Country: US (occurrence: US)
  Receive Date: 20210805
  Receipt Date: 20210805
  Transmission Date: 20211014
  Serious: Yes (Congenital Anomaly, Other)
  Sender: FDA-Public Use
  Company Number: US-PFIZER INC-6742

PATIENT
  Sex: Male

DRUGS (1)
  1. METHOTREXATE SODIUM. [Suspect]
     Active Substance: METHOTREXATE SODIUM
     Indication: ECTOPIC PREGNANCY
     Dosage: 50 MG/M2, FREQ: OTH (AT 8 WEEKS GESTATION AND AT APPROXIMATELY 10 WEEKS GESTATION)
     Route: 064

REACTIONS (12)
  - Skull malformation [Not Recovered/Not Resolved]
  - Intraventricular haemorrhage neonatal [Unknown]
  - Hypertelorism [Not Recovered/Not Resolved]
  - Hypertonia neonatal [Not Recovered/Not Resolved]
  - Maternal exposure during pregnancy [Not Recovered/Not Resolved]
  - Congenital nose malformation [Not Recovered/Not Resolved]
  - Congenital jaw malformation [Unknown]
  - Plagiocephaly [Recovered/Resolved]
  - Premature baby [Unknown]
  - Congenital eye disorder [Not Recovered/Not Resolved]
  - Foetal growth restriction [Not Recovered/Not Resolved]
  - Micrognathia [Not Recovered/Not Resolved]
